FAERS Safety Report 7776009-7 (Version None)
Quarter: 2011Q3

REPORT INFORMATION
  Report Type: 
  Country: None (occurrence: None)
  Receive Date: 20110923
  Receipt Date: 20110923
  Transmission Date: 20111222
  Serious: Yes (Hospitalization)
  Sender: FDA-Public Use
  Company Number: CN-GENENTECH-318174

PATIENT
  Age: 69 Year
  Sex: Male
  Weight: 50 kg

DRUGS (5)
  1. RITUXIMAB [Suspect]
     Indication: MANTLE CELL LYMPHOMA
     Dosage: UNK
     Route: 041
     Dates: start: 20110402
  2. CYCLOPHOSPHAMIDE [Concomitant]
     Indication: MANTLE CELL LYMPHOMA
     Dosage: UNK
     Route: 041
     Dates: start: 20110402
  3. DOXORUBICIN HCL [Concomitant]
     Indication: PRODUCT USED FOR UNKNOWN INDICATION
     Dosage: UNK
     Route: 041
     Dates: start: 20110402
  4. VINCRISTINE [Concomitant]
     Indication: MANTLE CELL LYMPHOMA
     Dosage: UNK
     Route: 041
     Dates: start: 20110402
  5. PREDNISONE [Concomitant]
     Indication: MANTLE CELL LYMPHOMA
     Dosage: UNK
     Route: 048
     Dates: start: 20110402

REACTIONS (4)
  - NEOPLASM PROGRESSION [None]
  - MANTLE CELL LYMPHOMA [None]
  - ASTHENIA [None]
  - RENAL FAILURE [None]
